FAERS Safety Report 20219538 (Version 1)
Quarter: 2021Q4

REPORT INFORMATION
  Report Type: Spontaneous
  Country: TH (occurrence: TH)
  Receive Date: 20211222
  Receipt Date: 20211222
  Transmission Date: 20220303
  Serious: Yes (Hospitalization, Other)
  Sender: FDA-Public Use
  Company Number: TH-SCIEGENP-2021SCLIT01007

PATIENT
  Age: 20 Year
  Sex: Female

DRUGS (5)
  1. BUPROPION HYDROCHLORIDE [Suspect]
     Active Substance: BUPROPION HYDROCHLORIDE
     Indication: Product used for unknown indication
     Route: 065
  2. LAMOTRIGINE [Suspect]
     Active Substance: LAMOTRIGINE
     Indication: Product used for unknown indication
  3. ESCITALOPRAM [Suspect]
     Active Substance: ESCITALOPRAM OXALATE
     Indication: Depression
     Route: 065
     Dates: end: 2021
  4. VORTIOXETINE [Suspect]
     Active Substance: VORTIOXETINE
     Indication: Depression
     Route: 065
  5. LURASIDONE [Suspect]
     Active Substance: LURASIDONE
     Indication: Depression
     Route: 065

REACTIONS (3)
  - Serotonin syndrome [Unknown]
  - Encephalopathy [Unknown]
  - Overdose [Unknown]
